FAERS Safety Report 17432575 (Version 2)
Quarter: 2020Q2

REPORT INFORMATION
  Report Type: Report from Study
  Country: None (occurrence: US)
  Receive Date: 20200218
  Receipt Date: 20200523
  Transmission Date: 20200713
  Serious: No
  Sender: FDA-Public Use
  Company Number: US-ABBVIE-20K-163-3281394-00

PATIENT
  Sex: Male

DRUGS (1)
  1. VENCLEXTA [Suspect]
     Active Substance: VENETOCLAX
     Indication: HODGKIN^S DISEASE NODULAR SCLEROSIS
     Route: 048
     Dates: start: 20190806

REACTIONS (1)
  - Blood glucose increased [Recovered/Resolved]
